FAERS Safety Report 7308809-1 (Version None)
Quarter: 2011Q1

REPORT INFORMATION
  Report Type: 
  Country: None (occurrence: None)
  Receive Date: 20110223
  Receipt Date: 20110214
  Transmission Date: 20110831
  Serious: Yes (Other)
  Sender: FDA-Public Use
  Company Number: PHHY2011US12808

PATIENT
  Age: 50 Year
  Sex: Female

DRUGS (3)
  1. RECLAST [Suspect]
     Route: 042
  2. CALCIUM [Concomitant]
  3. VITAMIN D [Concomitant]

REACTIONS (1)
  - THYROID NEOPLASM [None]
